FAERS Safety Report 5598769-6 (Version None)
Quarter: 2008Q1

REPORT INFORMATION
  Report Type: 
  Country: None (occurrence: None)
  Receive Date: 20080122
  Receipt Date: 20080115
  Transmission Date: 20080703
  Serious: Yes (Hospitalization)
  Sender: FDA-Public Use
  Company Number: US-RANBAXY-2008RR-12613

PATIENT

DRUGS (2)
  1. IBUPROFEN [Suspect]
     Route: 048
  2. BISOPROLOL FUMARATE [Concomitant]

REACTIONS (2)
  - HYPERSENSITIVITY [None]
  - MENINGITIS ASEPTIC [None]
